FAERS Safety Report 16410363 (Version 3)
Quarter: 2019Q2

REPORT INFORMATION
  Report Type: Spontaneous
  Country: US (occurrence: US)
  Receive Date: 20190610
  Receipt Date: 20190624
  Transmission Date: 20190711
  Serious: Yes (Other)
  Sender: FDA-Public Use
  Company Number: US-PFIZER INC-2019220966

PATIENT
  Age: 80 Year
  Sex: Male
  Weight: 78.96 kg

DRUGS (1)
  1. SUTENT [Suspect]
     Active Substance: SUNITINIB MALATE
     Indication: METASTATIC RENAL CELL CARCINOMA
     Dosage: 50 MG, CYCLIC (DAILY FOR 2 WEEKS AND THEN 1 WEEK OFF)
     Dates: start: 20190402, end: 20190513

REACTIONS (17)
  - Diarrhoea [Recovering/Resolving]
  - Fatigue [Recovering/Resolving]
  - Asthenia [Recovering/Resolving]
  - Decreased appetite [Unknown]
  - Haematochezia [Unknown]
  - Drug intolerance [Recovering/Resolving]
  - Cough [Unknown]
  - Arthralgia [Unknown]
  - Nausea [Recovering/Resolving]
  - Gastrooesophageal reflux disease [Recovering/Resolving]
  - Blister [Unknown]
  - Abdominal discomfort [Unknown]
  - Dysgeusia [Unknown]
  - Abdominal pain [Recovering/Resolving]
  - Dizziness [Unknown]
  - Weight decreased [Unknown]
  - Constipation [Unknown]
